FAERS Safety Report 8189333-3 (Version None)
Quarter: 2012Q1

REPORT INFORMATION
  Report Type: 
  Country: None (occurrence: None)
  Receive Date: 20120307
  Receipt Date: 20120229
  Transmission Date: 20120608
  Serious: Yes (Other)
  Sender: FDA-Public Use
  Company Number: US-AMGEN-USASP2012013609

PATIENT
  Age: 68 Year
  Sex: Female

DRUGS (2)
  1. CLINORIL [Concomitant]
     Indication: RHEUMATOID ARTHRITIS
  2. PROLIA [Suspect]
     Indication: OSTEOPOROSIS POSTMENOPAUSAL

REACTIONS (1)
  - VASCULITIS [None]
